FAERS Safety Report 6013589-6 (Version None)
Quarter: 2008Q4

REPORT INFORMATION
  Report Type: 
  Country: None (occurrence: None)
  Receive Date: 20081219
  Receipt Date: 20081209
  Transmission Date: 20090506
  Serious: No
  Sender: FDA-Public Use
  Company Number: US-JNJFOC-20081202865

PATIENT
  Age: 24 Year
  Sex: Female
  Weight: 93.44 kg

DRUGS (3)
  1. INVEGA [Suspect]
     Indication: DRUG USE FOR UNKNOWN INDICATION
     Route: 048
  2. RISPERDAL [Suspect]
     Indication: DRUG USE FOR UNKNOWN INDICATION
     Route: 048
  3. LITHIUM [Concomitant]
     Route: 048

REACTIONS (4)
  - AMENORRHOEA [None]
  - BLOOD PROLACTIN ABNORMAL [None]
  - GALACTORRHOEA [None]
  - WEIGHT INCREASED [None]
